FAERS Safety Report 19820632 (Version 1)
Quarter: 2021Q3

REPORT INFORMATION
  Report Type: Spontaneous
  Country: US (occurrence: US)
  Receive Date: 20210909
  Receipt Date: 20210909
  Transmission Date: 20211014
  Serious: No
  Sender: FDA-Public Use
  Company Number: None

PATIENT
  Age: 56 Year
  Sex: Female

DRUGS (1)
  1. TETRABENAZINE 25MG SLATE RUN PHARMACEUTICALS [Suspect]
     Active Substance: TETRABENAZINE
     Indication: HUNTINGTON^S DISEASE
     Route: 048
     Dates: start: 202108, end: 202108

REACTIONS (3)
  - Insomnia [None]
  - Feeling abnormal [None]
  - Feeling jittery [None]

NARRATIVE: CASE EVENT DATE: 202108
